FAERS Safety Report 16740930 (Version 1)
Quarter: 2019Q3

REPORT INFORMATION
  Report Type: Spontaneous
  Country: CA (occurrence: CA)
  Receive Date: 20190826
  Receipt Date: 20190826
  Transmission Date: 20191005
  Serious: Yes (Other)
  Sender: FDA-Public Use
  Company Number: CA-ROCHE-2391590

PATIENT
  Age: 70 Year
  Sex: Male

DRUGS (5)
  1. GANCICLOVIR. [Suspect]
     Active Substance: GANCICLOVIR
     Indication: CYTOMEGALOVIRUS VIRAEMIA
     Route: 042
  2. GANCICLOVIR. [Suspect]
     Active Substance: GANCICLOVIR
     Route: 042
     Dates: start: 20180220, end: 20180319
  3. GANCICLOVIR. [Suspect]
     Active Substance: GANCICLOVIR
     Route: 042
  4. FOSCARNET [Suspect]
     Active Substance: FOSCARNET
     Indication: CYTOMEGALOVIRUS COLITIS
     Route: 042
     Dates: start: 20180320, end: 20180605
  5. VALGANCICLOVIR. [Suspect]
     Active Substance: VALGANCICLOVIR
     Indication: CYTOMEGALOVIRUS VIRAEMIA
     Route: 048

REACTIONS (4)
  - Pancytopenia [Unknown]
  - Pneumonitis [Recovering/Resolving]
  - Cytomegalovirus colitis [Recovering/Resolving]
  - Pathogen resistance [Unknown]
